FAERS Safety Report 4709763-9 (Version None)
Quarter: 2005Q3

REPORT INFORMATION
  Report Type: 
  Country: None (occurrence: None)
  Receive Date: 20050707
  Receipt Date: 20050615
  Transmission Date: 20060218
  Serious: Yes (Hospitalization)
  Sender: FDA-Public Use
  Company Number: US_0411107549

PATIENT
  Age: 41 Year
  Sex: Female
  Weight: 68 kg

DRUGS (11)
  1. ZYPREXA [Suspect]
     Indication: SLEEP DISORDER
     Dosage: 20 MG DAY
     Dates: start: 20021016, end: 20031007
  2. LEXAPRO [Concomitant]
  3. FERROUS SULFATE TAB [Concomitant]
  4. HYDROCHLOROTHIAZIDE [Concomitant]
  5. ZESTORETIC [Concomitant]
  6. SEROQUEL [Concomitant]
  7. RISPERDAL [Concomitant]
  8. RANITIDINE [Concomitant]
  9. CRESTOR [Concomitant]
  10. COZAAR [Concomitant]
  11. PROTONIX [Concomitant]

REACTIONS (19)
  - COLONIC POLYP [None]
  - DEPRESSION [None]
  - DIABETES MELLITUS NON-INSULIN-DEPENDENT [None]
  - GASTRITIS [None]
  - HAEMATOCHEZIA [None]
  - HEPATIC STEATOSIS [None]
  - HYPERCHOLESTEROLAEMIA [None]
  - HYPERGLYCAEMIA [None]
  - HYPERTENSION [None]
  - HYPOGLYCAEMIA [None]
  - HYPOKALAEMIA [None]
  - METABOLIC DISORDER [None]
  - MUSCLE SPASMS [None]
  - OEDEMA PERIPHERAL [None]
  - PAIN IN EXTREMITY [None]
  - RECTAL HAEMORRHAGE [None]
  - REFLUX OESOPHAGITIS [None]
  - TREATMENT NONCOMPLIANCE [None]
  - WEIGHT INCREASED [None]
